FAERS Safety Report 8678116 (Version 2)
Quarter: 2012Q4

REPORT INFORMATION
  Report Type: 
  Country: US (occurrence: US)
  Receive Date: 20120723
  Receipt Date: 20120905
  Transmission Date: 20130627
  Serious: Yes (Other)
  Sender: FDA-Public Use
  Company Number: US-BAYER-2012-072635

PATIENT
  Age: 18 Year
  Sex: Female
  Weight: 78 kg

DRUGS (2)
  1. MIRENA [Suspect]
     Indication: CONTRACEPTION
     Dosage: 20 mcg/24hr, CONT
     Route: 015
     Dates: start: 20120612, end: 20120719
  2. ANTIHISTAMINES [Concomitant]
     Indication: MULTIPLE ALLERGIES

REACTIONS (2)
  - Device dislocation [None]
  - Muscle spasms [None]
